FAERS Safety Report 6847463-X (Version None)
Quarter: 2010Q3

REPORT INFORMATION
  Report Type: 
  Country: None (occurrence: None)
  Receive Date: 20100716
  Receipt Date: 20100708
  Transmission Date: 20110219
  Serious: Yes (Hospitalization)
  Sender: FDA-Public Use
  Company Number: US-JNJFOC-20100703279

PATIENT
  Sex: Female
  Weight: 74.84 kg

DRUGS (7)
  1. FENTANYL-100 [Suspect]
     Indication: BACK PAIN
     Dosage: EVERY OTHER DAY
     Route: 062
  2. MORPHINE [Suspect]
     Indication: BACK PAIN
     Route: 048
  3. DICLOFENAC [Concomitant]
     Indication: ARTHRITIS
     Route: 048
  4. QUINAZOLINE [Concomitant]
     Indication: ARTHRITIS
     Route: 048
  5. AMITRIPTYLINE HYDROCHLORIDE [Concomitant]
     Indication: CYSTITIS
     Route: 048
  6. GABAPENTIN [Concomitant]
     Indication: CYSTITIS
     Route: 048
  7. PAXIL [Concomitant]
     Indication: DEPRESSION
     Route: 048

REACTIONS (5)
  - ARTHRITIS [None]
  - BALANCE DISORDER [None]
  - FALL [None]
  - HEAD INJURY [None]
  - SKIN LACERATION [None]
